FAERS Safety Report 6252275-4 (Version None)
Quarter: 2009Q3

REPORT INFORMATION
  Report Type: 
  Country: None (occurrence: None)
  Receive Date: 20090701
  Receipt Date: 20090619
  Transmission Date: 20100115
  Serious: Yes (Hospitalization)
  Sender: FDA-Public Use
  Company Number: ES-RANBAXY-2009RR-25193

PATIENT
  Age: 58 Year
  Sex: Female

DRUGS (3)
  1. PAROXETINE HCL [Suspect]
     Dosage: 20 MG, QD
  2. LORAZEPAM [Suspect]
  3. LORMETAZEPAM [Suspect]

REACTIONS (3)
  - DRUG INTERACTION [None]
  - HYPONATRAEMIA [None]
  - RHABDOMYOLYSIS [None]
